FAERS Safety Report 5444147-X (Version None)
Quarter: 2007Q3

REPORT INFORMATION
  Report Type: 
  Country: None (occurrence: None)
  Receive Date: 20070904
  Receipt Date: 20070904
  Transmission Date: 20080115
  Serious: Yes (Life-Threatening)
  Sender: FDA-Public Use
  Company Number: None

PATIENT
  Sex: Male
  Weight: 74.8435 kg

DRUGS (2)
  1. FLUOROURACIL [Suspect]
     Indication: COLORECTAL CANCER
     Dosage: 3950 MG OVER 46 HRS IV
     Route: 042
     Dates: start: 20070815
  2. FLUOROURACIL [Suspect]
     Indication: COLORECTAL CANCER
     Dosage: 3950 MG OVER 46 HRS IV
     Route: 042
     Dates: start: 20070816

REACTIONS (3)
  - INCORRECT DRUG ADMINISTRATION RATE [None]
  - INFUSION RELATED REACTION [None]
  - MEDICATION ERROR [None]
